FAERS Safety Report 24591413 (Version 1)
Quarter: 2024Q4

REPORT INFORMATION
  Report Type: Spontaneous
  Country: US (occurrence: US)
  Receive Date: 20241108
  Receipt Date: 20241108
  Transmission Date: 20250114
  Serious: Yes (Hospitalization, Other)
  Sender: SPECGX
  Company Number: US-SPECGX-T202402151

PATIENT
  Age: 32 Year
  Sex: Male

DRUGS (5)
  1. METHADONE [Suspect]
     Active Substance: METHADONE HYDROCHLORIDE
     Indication: Drug use disorder
     Dosage: UNK
     Route: 065
  2. ATOMOXETINE [Suspect]
     Active Substance: ATOMOXETINE HYDROCHLORIDE
     Indication: Attention deficit hyperactivity disorder
     Dosage: UNK
     Route: 065
  3. FENTANYL [Suspect]
     Active Substance: FENTANYL
     Indication: Product used for unknown indication
     Dosage: UNK
     Route: 065
  4. HEROIN [Suspect]
     Active Substance: DIAMORPHINE
     Indication: Product used for unknown indication
     Dosage: UNK
     Route: 065
  5. MEPERIDINE [Suspect]
     Active Substance: MEPERIDINE
     Indication: Pain
     Dosage: UNK
     Route: 065

REACTIONS (9)
  - Hydrocephalus [Unknown]
  - Meningitis candida [Recovering/Resolving]
  - Status epilepticus [Unknown]
  - Papilloedema [Unknown]
  - Drug withdrawal syndrome [Unknown]
  - Craniotomy [Unknown]
  - Ventricular drainage [Unknown]
  - Spinal laminectomy [Unknown]
  - Substance use [Unknown]
